FAERS Safety Report 16792345 (Version 1)
Quarter: 2019Q3

REPORT INFORMATION
  Report Type: Spontaneous
  Country: ES (occurrence: ES)
  Receive Date: 20190910
  Receipt Date: 20190910
  Transmission Date: 20191005
  Serious: Yes (Hospitalization)
  Sender: FDA-Public Use
  Company Number: ES-BAUSCH-BL-2019-025246

PATIENT
  Age: 56 Year
  Sex: Female
  Weight: 75 kg

DRUGS (17)
  1. MABTHERA [Suspect]
     Active Substance: RITUXIMAB
     Route: 058
     Dates: start: 20190311, end: 20190415
  2. VINCRISTINE [Suspect]
     Active Substance: VINCRISTINE
     Indication: DIFFUSE LARGE B-CELL LYMPHOMA
     Route: 065
  3. MABTHERA [Suspect]
     Active Substance: RITUXIMAB
     Indication: DIFFUSE LARGE B-CELL LYMPHOMA
     Dosage: DOSE: 1 (UNSPECIFIED)
     Route: 058
     Dates: start: 201310, end: 20140307
  4. CYCLOPHOSPHAMIDE. [Suspect]
     Active Substance: CYCLOPHOSPHAMIDE
     Indication: DIFFUSE LARGE B-CELL LYMPHOMA
     Route: 065
  5. DEXAMETHASONE. [Concomitant]
     Active Substance: DEXAMETHASONE
     Indication: PRODUCT USED FOR UNKNOWN INDICATION
  6. MESNA. [Suspect]
     Active Substance: MESNA
     Indication: DIFFUSE LARGE B-CELL LYMPHOMA
     Dosage: DOSE: 1 (UNSPECIFIED)
     Route: 065
     Dates: start: 201812, end: 201901
  7. MITOXANTRONE [Suspect]
     Active Substance: MITOXANTRONE HYDROCHLORIDE
     Indication: DIFFUSE LARGE B-CELL LYMPHOMA
     Dosage: DOSE: 1 (UNSPECIFIED)
     Route: 065
     Dates: start: 201812, end: 201901
  8. CISPLATIN. [Suspect]
     Active Substance: CISPLATIN
     Indication: DIFFUSE LARGE B-CELL LYMPHOMA
     Route: 065
  9. MABTHERA [Suspect]
     Active Substance: RITUXIMAB
     Route: 058
     Dates: start: 20181203, end: 20181203
  10. CYTARABINE. [Suspect]
     Active Substance: CYTARABINE
     Indication: DIFFUSE LARGE B-CELL LYMPHOMA
     Dosage: DOSE: 1 (UNSPECIFIED)
     Route: 065
     Dates: start: 201812, end: 201901
  11. PREDNISOLONE. [Suspect]
     Active Substance: PREDNISOLONE
     Indication: DIFFUSE LARGE B-CELL LYMPHOMA
     Route: 065
  12. GEMCITABINE. [Suspect]
     Active Substance: GEMCITABINE
     Indication: DIFFUSE LARGE B-CELL LYMPHOMA
     Route: 065
  13. MABTHERA [Suspect]
     Active Substance: RITUXIMAB
     Route: 058
     Dates: start: 20180416, end: 20180918
  14. MABTHERA [Suspect]
     Active Substance: RITUXIMAB
     Route: 058
     Dates: start: 20190307
  15. ETOPOSIDE. [Suspect]
     Active Substance: ETOPOSIDE
     Indication: DIFFUSE LARGE B-CELL LYMPHOMA
     Dosage: DOSE: 1 (UNSPECIFIED)
     Route: 065
     Dates: start: 201812, end: 201901
  16. IFOSFAMIDE. [Suspect]
     Active Substance: IFOSFAMIDE
     Indication: DIFFUSE LARGE B-CELL LYMPHOMA
     Dosage: DOSE: 1 (UNSPECIFIED)
     Route: 065
     Dates: start: 201812, end: 201901
  17. DOXORUBICIN [Suspect]
     Active Substance: DOXORUBICIN
     Indication: DIFFUSE LARGE B-CELL LYMPHOMA
     Route: 065

REACTIONS (2)
  - Chronic hepatitis [Recovered/Resolved]
  - Pneumonia [Recovered/Resolved]

NARRATIVE: CASE EVENT DATE: 201809
